FAERS Safety Report 14738310 (Version 2)
Quarter: 2018Q2

REPORT INFORMATION
  Report Type: Spontaneous
  Country: KR (occurrence: KR)
  Receive Date: 20180409
  Receipt Date: 20180409
  Transmission Date: 20180711
  Serious: Yes (Hospitalization, Other)
  Sender: FDA-Public Use
  Company Number: PHHY2018KR054697

PATIENT
  Age: 22 Year
  Sex: Male

DRUGS (6)
  1. L-ARGININE [Concomitant]
     Active Substance: ARGININE
     Indication: MELAS SYNDROME
     Dosage: UNK
     Route: 065
  2. COENZYME Q10 [Concomitant]
     Active Substance: UBIDECARENONE
     Indication: MELAS SYNDROME
     Dosage: UNK
     Route: 065
  3. VITAMIN B [Concomitant]
     Active Substance: VITAMIN B
     Indication: MELAS SYNDROME
     Dosage: UNK
     Route: 065
  4. PREDNISOLONE. [Suspect]
     Active Substance: PREDNISOLONE
     Indication: MELAS SYNDROME
     Dosage: 15 MG, UNK
     Route: 065
  5. DEXAMETHASONE. [Suspect]
     Active Substance: DEXAMETHASONE
     Indication: MELAS SYNDROME
     Dosage: 15 MG, QD
     Route: 042
  6. L-CARNITINE [Concomitant]
     Active Substance: LEVOCARNITINE
     Indication: MELAS SYNDROME
     Dosage: UNK
     Route: 065

REACTIONS (3)
  - Gait disturbance [Unknown]
  - Osteonecrosis [Unknown]
  - Pelvic pain [Unknown]
